FAERS Safety Report 5329222-2 (Version None)
Quarter: 2007Q2

REPORT INFORMATION
  Report Type: 
  Country: None (occurrence: None)
  Receive Date: 20070518
  Receipt Date: 20070506
  Transmission Date: 20071010
  Serious: Yes (Other)
  Sender: FDA-Public Use
  Company Number: US-PFIZER INC-2007035997

PATIENT
  Sex: Female
  Weight: 83 kg

DRUGS (6)
  1. LYRICA [Suspect]
     Indication: PAIN IN EXTREMITY
     Dates: start: 20070326, end: 20070502
  2. LYRICA [Suspect]
     Indication: DIABETIC NEUROPATHY
  3. LIPITOR [Suspect]
     Indication: BLOOD CHOLESTEROL INCREASED
  4. CLONIDINE [Concomitant]
  5. LASIX [Concomitant]
  6. POTASSIUM ACETATE [Concomitant]

REACTIONS (9)
  - ABDOMINAL PAIN UPPER [None]
  - ALOPECIA [None]
  - ANOREXIA [None]
  - ASTHENIA [None]
  - BLOOD PRESSURE ABNORMAL [None]
  - CORONARY ARTERY BYPASS [None]
  - MALAISE [None]
  - NAUSEA [None]
  - SPINAL FRACTURE [None]
